FAERS Safety Report 24305601 (Version 1)
Quarter: 2024Q3

REPORT INFORMATION
  Report Type: Spontaneous
  Country: JP (occurrence: JP)
  Receive Date: 20240911
  Receipt Date: 20240911
  Transmission Date: 20241017
  Serious: Yes (Other)
  Sender: AMGEN
  Company Number: JP-AMGEN-JPNSP2024176150

PATIENT
  Sex: Female

DRUGS (1)
  1. BLINCYTO [Suspect]
     Active Substance: BLINATUMOMAB
     Indication: Acute lymphocytic leukaemia
     Dosage: UNK, 28 DAYS CONTINUING DRIP INFUSION
     Route: 042

REACTIONS (1)
  - Mediastinum neoplasm [Recovering/Resolving]

NARRATIVE: CASE EVENT DATE: 20240801
